FAERS Safety Report 25385662 (Version 1)
Quarter: 2025Q2

REPORT INFORMATION
  Report Type: Spontaneous
  Country: US (occurrence: None)
  Receive Date: 20250530
  Receipt Date: 20250530
  Transmission Date: 20250717
  Serious: Yes (Hospitalization)
  Sender: FDA-CTU
  Company Number: None

PATIENT
  Age: 44 Year
  Sex: Female

DRUGS (1)
  1. XCOPRI [Suspect]
     Active Substance: CENOBAMATE
     Dosage: FREQUENCY : DAILY;?
     Dates: start: 20250407

REACTIONS (5)
  - Fall [None]
  - Seizure [None]
  - Head injury [None]
  - Balance disorder [None]
  - Aura [None]

NARRATIVE: CASE EVENT DATE: 20250521
